FAERS Safety Report 10896240 (Version 3)
Quarter: 2015Q2

REPORT INFORMATION
  Report Type: Spontaneous
  Country: US (occurrence: US)
  Receive Date: 20150309
  Receipt Date: 20150406
  Transmission Date: 20150821
  Serious: Yes (Other)
  Sender: FDA-Public Use
  Company Number: US-AUROBINDO-AUR-APL-2015-01836

PATIENT
  Sex: Female

DRUGS (7)
  1. METFORMIN [Suspect]
     Active Substance: METFORMIN HYDROCHLORIDE
     Indication: DIABETES MELLITUS
     Dosage: 500 MG, 3 TIMES A DAY
     Route: 065
     Dates: start: 20110509, end: 20110706
  2. METFORMIN [Suspect]
     Active Substance: METFORMIN HYDROCHLORIDE
     Dosage: 500 MG, TWO TIMES A DAY
     Dates: start: 20110709, end: 20110713
  3. FOSAMAX [Suspect]
     Active Substance: ALENDRONATE SODIUM
     Indication: OSTEOPENIA
     Dosage: 35 MG, EVERY WEEK
     Route: 048
     Dates: start: 201010, end: 20110729
  4. METFORMIN [Suspect]
     Active Substance: METFORMIN HYDROCHLORIDE
     Dosage: 500 MG, 3 TIMES A DAY
     Route: 048
     Dates: start: 20110717, end: 20110929
  5. NEXIUM [Suspect]
     Active Substance: ESOMEPRAZOLE MAGNESIUM
     Indication: PROPHYLAXIS
     Dosage: UNK
     Route: 048
  6. METFORMIN [Suspect]
     Active Substance: METFORMIN HYDROCHLORIDE
     Dosage: 500 MG IN THE MORNING AND 1000 MG IN THE EVENING
     Route: 048
     Dates: start: 20110707, end: 20110708
  7. METFORMIN [Suspect]
     Active Substance: METFORMIN HYDROCHLORIDE
     Dosage: 500 MG, TWO TIMES A DAY
     Route: 048
     Dates: start: 20110930, end: 20120812

REACTIONS (1)
  - Gastrooesophageal reflux disease [Unknown]
